FAERS Safety Report 5191675-0 (Version None)
Quarter: 2006Q4

REPORT INFORMATION
  Report Type: 
  Country: None (occurrence: None)
  Receive Date: 20061219
  Receipt Date: 20061211
  Transmission Date: 20070319
  Serious: Yes (Death, Other)
  Sender: FDA-Public Use
  Company Number: 2005041242

PATIENT
  Age: 36 Year
  Sex: Male

DRUGS (3)
  1. NEURONTIN [Suspect]
     Indication: MIGRAINE
     Dosage: 900 MG (300 MG, 3 IN 1 D)
     Dates: start: 20010418, end: 20020212
  2. NEURONTIN [Suspect]
     Indication: MULTIPLE SCLEROSIS
     Dosage: 900 MG (300 MG, 3 IN 1 D)
     Dates: start: 20010418, end: 20020212
  3. NEURONTIN [Suspect]
     Indication: POLYNEUROPATHY
     Dosage: 900 MG (300 MG, 3 IN 1 D)
     Dates: start: 20010418, end: 20020212

REACTIONS (5)
  - CHEST INJURY [None]
  - COMPLETED SUICIDE [None]
  - CONDITION AGGRAVATED [None]
  - GUN SHOT WOUND [None]
  - MULTIPLE SCLEROSIS [None]
